FAERS Safety Report 12924534 (Version 3)
Quarter: 2017Q1

REPORT INFORMATION
  Report Type: Spontaneous
  Country: JP (occurrence: JP)
  Receive Date: 20161108
  Receipt Date: 20170118
  Transmission Date: 20170428
  Serious: Yes (Other)
  Sender: FDA-Public Use
  Company Number: JP-PFIZER INC-2016510724

PATIENT
  Age: 45 Year
  Sex: Female

DRUGS (7)
  1. FENTANIL [Suspect]
     Active Substance: FENTANYL
     Indication: INDUCTION OF ANAESTHESIA
     Dosage: UNK
     Route: 042
  2. HYDROCORTONE /00028601/ [Suspect]
     Active Substance: HYDROCORTISONE
     Dosage: 100 MG, UNK
  3. SEVOFLURANE. [Suspect]
     Active Substance: SEVOFLURANE
     Indication: ANAESTHESIA
  4. PRECEDEX [Suspect]
     Active Substance: DEXMEDETOMIDINE HYDROCHLORIDE
     Route: 042
  5. PROPOFOL. [Suspect]
     Active Substance: PROPOFOL
     Indication: INDUCTION OF ANAESTHESIA
  6. ROPIVACAINE [Suspect]
     Active Substance: ROPIVACAINE
     Indication: NERVE BLOCK
     Dosage: 0.375% ROPIVACAINE 36 ML
  7. ROCURONIUM [Suspect]
     Active Substance: ROCURONIUM BROMIDE
     Indication: INDUCTION OF ANAESTHESIA

REACTIONS (1)
  - Drug-induced liver injury [Recovering/Resolving]
